FAERS Safety Report 9720830 (Version 1)
Quarter: 2013Q4

REPORT INFORMATION
  Report Type: Report from Study
  Country: IT (occurrence: IT)
  Receive Date: 20131129
  Receipt Date: 20131129
  Transmission Date: 20140711
  Serious: Yes (Death, Other)
  Sender: FDA-Public Use
  Company Number: IT-ROCHE-1309455

PATIENT
  Sex: 0

DRUGS (5)
  1. RITUXIMAB [Suspect]
     Indication: CENTRAL NERVOUS SYSTEM LYMPHOMA
     Route: 065
  2. IFOSFAMIDE [Suspect]
     Indication: CENTRAL NERVOUS SYSTEM LYMPHOMA
     Dosage: 2 G/M2/DAY 2-H INTRAVENOUS NFUSION ON DAYS 1-3
     Route: 042
  3. ETOPOSIDE [Suspect]
     Indication: CENTRAL NERVOUS SYSTEM LYMPHOMA
     Route: 042
  4. ACETAMINOPHEN [Concomitant]
     Route: 048
  5. DEXAMETHASONE [Concomitant]
     Route: 065

REACTIONS (9)
  - Bronchopulmonary aspergillosis [Fatal]
  - Neutropenia [Unknown]
  - Thrombocytopenia [Unknown]
  - Anaemia [Unknown]
  - Hepatotoxicity [Unknown]
  - Febrile neutropenia [Unknown]
  - Pneumonia [Unknown]
  - Sepsis [Unknown]
  - Ileus paralytic [Unknown]
